FAERS Safety Report 8294686-1 (Version None)
Quarter: 2012Q2

REPORT INFORMATION
  Report Type: 
  Country: None (occurrence: None)
  Receive Date: 20120418
  Receipt Date: 20120410
  Transmission Date: 20120825
  Serious: Yes (Other)
  Sender: FDA-Public Use
  Company Number: US-ASTELLAS-2012US003366

PATIENT
  Sex: Female

DRUGS (3)
  1. ERLOTINIB HYDROCHLORIDE [Suspect]
     Indication: NON-SMALL CELL LUNG CANCER
     Dosage: 150 MG, UID/QD
     Route: 048
     Dates: start: 20091201
  2. VANICREAM [Concomitant]
     Indication: RASH
     Dosage: UNK
     Route: 061
  3. BENADRYL [Concomitant]
     Indication: PRURITUS
     Dosage: UNK
     Route: 048

REACTIONS (9)
  - HAIR TEXTURE ABNORMAL [None]
  - CATARACT [None]
  - RASH [None]
  - SKIN FISSURES [None]
  - PAIN OF SKIN [None]
  - DIARRHOEA [None]
  - VISUAL IMPAIRMENT [None]
  - DYSPEPSIA [None]
  - PRURITUS [None]
